FAERS Safety Report 13999236 (Version 1)
Quarter: 2017Q3

REPORT INFORMATION
  Report Type: Spontaneous
  Country: ZA (occurrence: ZA)
  Receive Date: 20170922
  Receipt Date: 20170922
  Transmission Date: 20171128
  Serious: Yes (Other)
  Sender: FDA-Public Use
  Company Number: ZA-BAYER-2017-179635

PATIENT
  Sex: Female

DRUGS (1)
  1. MIRENA [Suspect]
     Active Substance: LEVONORGESTREL
     Dosage: 20 MCG/24HR, CONT
     Route: 015
     Dates: start: 201702

REACTIONS (3)
  - Polymenorrhoea [None]
  - Genital haemorrhage [None]
  - Breast tenderness [None]

NARRATIVE: CASE EVENT DATE: 2017
